FAERS Safety Report 26172690 (Version 1)
Quarter: 2025Q4

REPORT INFORMATION
  Report Type: Spontaneous
  Country: EU (occurrence: EU)
  Receive Date: 20251218
  Receipt Date: 20251218
  Transmission Date: 20260117
  Serious: Yes (Other)
  Sender: CHEPLAPHARM
  Company Number: None

PATIENT
  Age: 30 Year
  Sex: Female
  Weight: 75 kg

DRUGS (6)
  1. QUETIAPINE [Suspect]
     Active Substance: QUETIAPINE
     Indication: Mental disorder
     Dosage: 0 0 1?DAILY DOSE: 50 MILLIGRAM
     Route: 048
     Dates: start: 20251022, end: 20251023
  2. QUETIAPINE [Suspect]
     Active Substance: QUETIAPINE
     Indication: Mental disorder
     Dosage: DAILY DOSE: 100 MILLIGRAM
     Route: 048
     Dates: start: 20251023, end: 20251025
  3. FLUOXETINE HYDROCHLORIDE [Suspect]
     Active Substance: FLUOXETINE HYDROCHLORIDE
     Indication: Mental disorder
     Dosage: 20; 1/2 0 0?DAILY DOSE: 10 MILLIGRAM
     Route: 048
     Dates: start: 20251023, end: 20251025
  4. TRIMEPRAZINE [Concomitant]
     Active Substance: TRIMEPRAZINE
     Indication: Mental disorder
     Dosage: 10: 0 0 1 ?DAILY DOSE: 10 MILLIGRAM
     Route: 048
     Dates: end: 20251025
  5. LAMOTRIGINE [Concomitant]
     Active Substance: LAMOTRIGINE
     Indication: Mental disorder
     Dosage: DAILY DOSE: 10 MILLIGRAM
     Route: 048
     Dates: end: 20251025
  6. LAMOTRIGINE [Concomitant]
     Active Substance: LAMOTRIGINE
     Indication: Mental disorder
     Dosage: 200 1 0 1 INCREASED 48 HOURS AGO BY 50 MG/DAY ?DAILY DOSE: 50 MILLIGRAM
     Route: 048

REACTIONS (2)
  - Rhabdomyolysis [Recovering/Resolving]
  - Acute kidney injury [Unknown]

NARRATIVE: CASE EVENT DATE: 20251001
